FAERS Safety Report 16265778 (Version 1)
Quarter: 2019Q2

REPORT INFORMATION
  Report Type: Spontaneous
  Country: ES (occurrence: ES)
  Receive Date: 20190502
  Receipt Date: 20190502
  Transmission Date: 20190711
  Serious: Yes (Other)
  Sender: FDA-Public Use
  Company Number: ES-TEVA-2019-ES-1043903

PATIENT
  Age: 66 Year
  Sex: Female

DRUGS (1)
  1. ETOPOSIDO [Suspect]
     Active Substance: ETOPOSIDE
     Dates: start: 20180129

REACTIONS (1)
  - Syncope [Recovered/Resolved]

NARRATIVE: CASE EVENT DATE: 20190315
